FAERS Safety Report 25300967 (Version 1)
Quarter: 2025Q2

REPORT INFORMATION
  Report Type: Spontaneous
  Country: US (occurrence: US)
  Receive Date: 20250512
  Receipt Date: 20250512
  Transmission Date: 20250716
  Serious: Yes (Hospitalization, Other)
  Sender: SLATE RUN
  Company Number: US-SLATERUN-2025SRLIT00052

PATIENT
  Age: 16 Year
  Sex: Female

DRUGS (12)
  1. BUPROPION [Suspect]
     Active Substance: BUPROPION
     Indication: Major depression
     Route: 065
  2. BUPROPION [Suspect]
     Active Substance: BUPROPION
     Route: 065
  3. BUPROPION [Suspect]
     Active Substance: BUPROPION
     Route: 065
  4. BUPROPION [Suspect]
     Active Substance: BUPROPION
     Route: 048
  5. QUETIAPINE [Suspect]
     Active Substance: QUETIAPINE
     Indication: Major depression
     Route: 065
  6. QUETIAPINE [Suspect]
     Active Substance: QUETIAPINE
     Route: 065
  7. QUETIAPINE [Suspect]
     Active Substance: QUETIAPINE
     Route: 065
  8. QUETIAPINE [Suspect]
     Active Substance: QUETIAPINE
     Route: 065
  9. QUETIAPINE [Suspect]
     Active Substance: QUETIAPINE
     Route: 048
  10. QUETIAPINE [Suspect]
     Active Substance: QUETIAPINE
     Route: 065
  11. METHYLPHENIDATE [Suspect]
     Active Substance: METHYLPHENIDATE
     Indication: Adjuvant therapy
     Route: 065
  12. METHYLPHENIDATE [Suspect]
     Active Substance: METHYLPHENIDATE
     Route: 048

REACTIONS (3)
  - Tachycardia [Unknown]
  - Suicide attempt [Unknown]
  - Intentional overdose [Unknown]
